FAERS Safety Report 4381465-0 (Version None)
Quarter: 2004Q2

REPORT INFORMATION
  Report Type: 
  Country: None (occurrence: None)
  Receive Date: 20040616
  Receipt Date: 20040610
  Transmission Date: 20050107
  Serious: Yes (Other)
  Sender: FDA-Public Use
  Company Number: 2004038905

PATIENT
  Age: 66 Year
  Sex: Male
  Weight: 79.3795 kg

DRUGS (3)
  1. BENADRYL [Suspect]
     Indication: URTICARIA
     Dosage: UNSPECIFIED AMOUNT ONCE ORAL
     Route: 048
     Dates: start: 20040423, end: 20040423
  2. NITE-TIME COLD MEDICINE (DEXTROMETHORPHAN HYDROBROMIDE, DOXYLAMINE SUC [Suspect]
     Dosage: 1 LIQUICAP ONCE, ORAL
     Route: 048
     Dates: start: 20040423, end: 20040423
  3. LEVOTHYROXINE SODIUM [Concomitant]

REACTIONS (5)
  - CONDITION AGGRAVATED [None]
  - HYPERSENSITIVITY [None]
  - LOSS OF CONSCIOUSNESS [None]
  - PRURITUS [None]
  - URTICARIA [None]
